FAERS Safety Report 7552175-3 (Version None)
Quarter: 2011Q2

REPORT INFORMATION
  Report Type: 
  Country: None (occurrence: None)
  Receive Date: 20110616
  Receipt Date: 20040916
  Transmission Date: 20111010
  Serious: Yes (Hospitalization)
  Sender: FDA-Public Use
  Company Number: PHHO2003JP03586

PATIENT
  Sex: Female
  Weight: 74 kg

DRUGS (3)
  1. LOCHOLEST [Suspect]
     Dosage: 40 MG, QD
     Route: 048
     Dates: start: 20030901
  2. LOCHOLEST [Suspect]
     Indication: HYPERCHOLESTEROLAEMIA
     Dosage: 20 MG, QD
     Route: 048
     Dates: start: 20010120
  3. WARFARIN SODIUM [Suspect]
     Dosage: 1 MG, QD
     Route: 048
     Dates: start: 20020413, end: 20020517

REACTIONS (4)
  - ATRIAL FIBRILLATION [None]
  - IRON DEFICIENCY ANAEMIA [None]
  - CARDIAC FAILURE [None]
  - GASTROINTESTINAL HAEMORRHAGE [None]
